FAERS Safety Report 6519405-8 (Version None)
Quarter: 2009Q4

REPORT INFORMATION
  Report Type: 
  Country: None (occurrence: None)
  Receive Date: 20091224
  Receipt Date: 20091224
  Transmission Date: 20100525
  Serious: Yes (Hospitalization)
  Sender: FDA-Public Use
  Company Number: None

PATIENT
  Sex: Male
  Weight: 55 kg

DRUGS (13)
  1. FLUDARABINE PHOSPHATE [Suspect]
  2. MELPHALAN HYDROCHLORIDE [Suspect]
  3. PREDNISONE [Concomitant]
  4. OXYCODONE HCL [Concomitant]
  5. MEGESTROL ACETATE [Concomitant]
  6. VALACYCLOVIR HCL [Concomitant]
  7. HYDROMORPHONE HCL [Concomitant]
  8. ESOMEPRAZOLE MAGNESIUM [Concomitant]
  9. ALLOPURINOL [Concomitant]
  10. MYCOPHENOLATE MOFETIL [Concomitant]
  11. ZYRTEC-D 12 HOUR [Concomitant]
  12. DAPSONE [Concomitant]
  13. SODIUM CHLORIDE [Concomitant]

REACTIONS (13)
  - ACUTE GRAFT VERSUS HOST DISEASE IN SKIN [None]
  - ADENOVIRUS INFECTION [None]
  - CYTOMEGALOVIRUS INFECTION [None]
  - EPSTEIN-BARR VIRUS INFECTION [None]
  - FATIGUE [None]
  - GRAFT VERSUS HOST DISEASE [None]
  - HEPATITIS [None]
  - HYPERBILIRUBINAEMIA [None]
  - JAUNDICE [None]
  - MALAISE [None]
  - PANCYTOPENIA [None]
  - RASH [None]
  - TOXOPLASMOSIS [None]
